FAERS Safety Report 11276058 (Version 1)
Quarter: 2015Q3

REPORT INFORMATION
  Report Type: Spontaneous
  Country: AR (occurrence: AR)
  Receive Date: 20150716
  Receipt Date: 20150716
  Transmission Date: 20151125
  Serious: Yes (Other)
  Sender: FDA-Public Use
  Company Number: AR-BAYER-2015-374550

PATIENT
  Sex: Female

DRUGS (1)
  1. YASMIN [Suspect]
     Active Substance: DROSPIRENONE\ETHINYL ESTRADIOL
     Dosage: UNK
     Route: 048

REACTIONS (6)
  - Pulmonary embolism [None]
  - Pulmonary hypertension [None]
  - Angina pectoris [Not Recovered/Not Resolved]
  - Cardiac failure acute [None]
  - Pulmonary pain [None]
  - Chest pain [None]
